FAERS Safety Report 8887131 (Version 1)
Quarter: 2012Q4

REPORT INFORMATION
  Report Type: 
  Country: DE (occurrence: DE)
  Receive Date: 20121105
  Receipt Date: 20121105
  Transmission Date: 20130627
  Serious: Yes (Hospitalization)
  Sender: FDA-Public Use
  Company Number: DE-TEVA-366387GER

PATIENT
  Age: 67 Year
  Sex: Male

DRUGS (3)
  1. FOLFOX-6 [Suspect]
     Indication: COLON CANCER
     Route: 065
     Dates: start: 201110, end: 201202
  2. FOLFOX-6 [Suspect]
     Indication: COLON CANCER
     Route: 065
     Dates: start: 201110, end: 201202
  3. FOLINIC ACID [Suspect]
     Indication: COLON CANCER
     Route: 065
     Dates: start: 201110, end: 201202

REACTIONS (2)
  - Interstitial lung disease [Not Recovered/Not Resolved]
  - Dyspnoea exertional [Not Recovered/Not Resolved]
